FAERS Safety Report 18996658 (Version 2)
Quarter: 2021Q1

REPORT INFORMATION
  Report Type: Spontaneous
  Country: US (occurrence: US)
  Receive Date: 20210311
  Receipt Date: 20210317
  Transmission Date: 20210420
  Serious: No
  Sender: FDA-Public Use
  Company Number: US-SA-2021SA081501

PATIENT
  Age: 32 Year
  Sex: Female

DRUGS (1)
  1. DUPIXENT [Suspect]
     Active Substance: DUPILUMAB
     Indication: DERMATITIS ALLERGIC
     Dosage: 300 MG, QOW
     Route: 058
     Dates: start: 20201230

REACTIONS (3)
  - Eczema [Not Recovered/Not Resolved]
  - Product dose omission issue [Unknown]
  - Peripheral swelling [Not Recovered/Not Resolved]

NARRATIVE: CASE EVENT DATE: 20201230
